FAERS Safety Report 10728758 (Version 1)
Quarter: 2015Q1

REPORT INFORMATION
  Report Type: Spontaneous
  Country: US (occurrence: None)
  Receive Date: 20150120
  Receipt Date: 20150120
  Transmission Date: 20150721
  Serious: Yes (Hospitalization)
  Sender: FDA-Public Use
  Company Number: None

PATIENT
  Age: 70 Year
  Sex: Female
  Weight: 73.6 kg

DRUGS (8)
  1. VERSED [Concomitant]
     Active Substance: MIDAZOLAM HYDROCHLORIDE
  2. NITROGLYCERIN. [Concomitant]
     Active Substance: NITROGLYCERIN
  3. FENTANYL. [Concomitant]
     Active Substance: FENTANYL
  4. VERSED [Concomitant]
     Active Substance: MIDAZOLAM HYDROCHLORIDE
  5. ANGIOMAX [Suspect]
     Active Substance: BIVALIRUDIN
     Indication: CATHETERISATION CARDIAC
     Dates: start: 20150112, end: 20150112
  6. ANGIOMAX [Concomitant]
     Active Substance: BIVALIRUDIN
  7. NICARDIPINE [Concomitant]
     Active Substance: NICARDIPINE
  8. FENTANYL. [Concomitant]
     Active Substance: FENTANYL

REACTIONS (3)
  - Post procedural complication [None]
  - Chest pain [None]
  - Thrombosis in device [None]

NARRATIVE: CASE EVENT DATE: 20150112
